FAERS Safety Report 22805622 (Version 5)
Quarter: 2023Q4

REPORT INFORMATION
  Report Type: Report from Study
  Country: US (occurrence: US)
  Receive Date: 20230809
  Receipt Date: 20231117
  Transmission Date: 20240110
  Serious: No
  Sender: FDA-Public Use
  Company Number: US-002147023-NVSC2023US173814

PATIENT
  Sex: Female

DRUGS (2)
  1. KISQALI [Suspect]
     Active Substance: RIBOCICLIB
     Indication: Product used for unknown indication
     Dosage: 600 MG, UNKNOWN
     Route: 065
  2. KISQALI [Suspect]
     Active Substance: RIBOCICLIB
     Dosage: 400 MG, UNKNOWN (DOSE DECREASED)
     Route: 065

REACTIONS (6)
  - Skin lesion [Unknown]
  - Flatulence [Unknown]
  - Diarrhoea [Unknown]
  - Alopecia [Unknown]
  - Arthralgia [Unknown]
  - White blood cell count decreased [Unknown]
